FAERS Safety Report 4595757-3 (Version None)
Quarter: 2005Q1

REPORT INFORMATION
  Report Type: 
  Country: None (occurrence: None)
  Receive Date: 20050224
  Receipt Date: 20050119
  Transmission Date: 20050727
  Serious: Yes (Hospitalization)
  Sender: FDA-Public Use
  Company Number: D01200500497

PATIENT
  Age: 47 Year
  Sex: Male
  Weight: 72 kg

DRUGS (7)
  1. CISPLATIN [Suspect]
     Indication: SMALL CELL LUNG CANCER EXTENSIVE STAGE
     Dosage: 80MG/M2 CONT INTRAVENOUS NOS
     Route: 042
     Dates: start: 20041227, end: 20041227
  2. ETOPOSIDE [Suspect]
     Indication: SMALL CELL LUNG CANCER EXTENSIVE STAGE
     Dosage: 120MG/M2 GIVEN ON DAYS 1 2 AND 3 IN A 30-MINUTE INFUSION INTRAVENOUS NOS
     Route: 042
     Dates: start: 20041227, end: 20041229
  3. ONDANSETRON [Concomitant]
  4. SODIUM CHLORIDE 0.9% [Concomitant]
  5. TROMCARDIN [Concomitant]
  6. FUROSEMIDE [Concomitant]
  7. METOCLOPRAMIDE HYDROCHLORIDE [Concomitant]

REACTIONS (3)
  - DUODENAL ULCER [None]
  - DUODENITIS [None]
  - GASTRITIS [None]
